FAERS Safety Report 10464625 (Version 2)
Quarter: 2014Q4

REPORT INFORMATION
  Report Type: Spontaneous
  Country: US (occurrence: US)
  Receive Date: 20140919
  Receipt Date: 20141024
  Transmission Date: 20150528
  Serious: Yes (Hospitalization, Other)
  Sender: FDA-Public Use
  Company Number: US-B.I. PHARMACEUTICALS,INC./RIDGEFIELD-2014-BI-43567BP

PATIENT
  Age: 67 Year
  Sex: Male

DRUGS (3)
  1. ASPIRIN. [Suspect]
     Active Substance: ASPIRIN
     Indication: PRODUCT USED FOR UNKNOWN INDICATION
     Route: 065
     Dates: end: 20130130
  2. PRADAXA [Suspect]
     Active Substance: DABIGATRAN ETEXILATE MESYLATE
     Indication: ATRIAL FIBRILLATION
     Route: 065
     Dates: end: 20130130
  3. COLACE [Concomitant]
     Active Substance: DOCUSATE SODIUM
     Indication: PRODUCT USED FOR UNKNOWN INDICATION
     Route: 065

REACTIONS (13)
  - Anaemia [Recovered/Resolved]
  - Hypertension [Unknown]
  - Coronary artery disease [Unknown]
  - Diverticulum intestinal haemorrhagic [Recovered/Resolved]
  - Cardiomyopathy [Unknown]
  - Diverticulum [Unknown]
  - Pulmonary hypertension [Unknown]
  - Ejection fraction decreased [Unknown]
  - Hyperlipidaemia [Unknown]
  - Chronic kidney disease [Unknown]
  - Type 2 diabetes mellitus [Unknown]
  - Bundle branch block left [Unknown]
  - Lower gastrointestinal haemorrhage [Unknown]

NARRATIVE: CASE EVENT DATE: 2011
